FAERS Safety Report 13307309 (Version 1)
Quarter: 2017Q1

REPORT INFORMATION
  Report Type: Spontaneous
  Country: SE (occurrence: SE)
  Receive Date: 20170308
  Receipt Date: 20170308
  Transmission Date: 20170428
  Serious: Yes (Other)
  Sender: FDA-Public Use
  Company Number: SE-TEVA-743701ISR

PATIENT
  Age: 59 Year
  Sex: Male

DRUGS (1)
  1. GABAPENTIN ACTAVIS [Suspect]
     Active Substance: GABAPENTIN
     Dates: end: 201409

REACTIONS (13)
  - Paraesthesia [Unknown]
  - Alopecia [Unknown]
  - Erectile dysfunction [Unknown]
  - Pruritus generalised [Unknown]
  - Balance disorder [Unknown]
  - Sexual dysfunction [Unknown]
  - Increased tendency to bruise [Unknown]
  - Femur fracture [Unknown]
  - Lymphadenopathy [Unknown]
  - Muscular weakness [Unknown]
  - Osteoporosis [Unknown]
  - Memory impairment [Unknown]
  - Mental impairment [Unknown]

NARRATIVE: CASE EVENT DATE: 201409
